FAERS Safety Report 21260058 (Version 1)
Quarter: 2022Q3

REPORT INFORMATION
  Report Type: Spontaneous
  Country: US (occurrence: None)
  Receive Date: 20220825
  Receipt Date: 20220825
  Transmission Date: 20221026
  Serious: Yes (unspecified)
  Sender: FDA-Public Use
  Company Number: None

PATIENT
  Age: 27 Year
  Sex: Female
  Weight: 44.1 kg

DRUGS (1)
  1. MAGNESIUM CITRATE [Suspect]
     Active Substance: MAGNESIUM CITRATE
     Indication: Colonoscopy
     Dates: start: 20220714, end: 20220714

REACTIONS (6)
  - Illness [None]
  - Nausea [None]
  - Diarrhoea [None]
  - Pain [None]
  - Recalled product administered [None]
  - Dysstasia [None]

NARRATIVE: CASE EVENT DATE: 20220715
